FAERS Safety Report 9314061 (Version 1)
Quarter: 2013Q2

REPORT INFORMATION
  Report Type: Spontaneous
  Country: US (occurrence: US)
  Receive Date: 20130529
  Receipt Date: 20130529
  Transmission Date: 20140414
  Serious: No
  Sender: FDA-Public Use
  Company Number: US-ROXANE LABORATORIES, INC.-2013-RO-00822RO

PATIENT
  Age: 75 Year
  Sex: Male

DRUGS (3)
  1. LITHIUM CARBONATE [Suspect]
     Indication: BIPOLAR I DISORDER
     Dosage: 300 MG
     Route: 048
  2. LITHIUM [Suspect]
     Indication: BIPOLAR I DISORDER
     Dosage: 450 MG
     Route: 048
  3. VALIUM [Concomitant]
     Indication: BIPOLAR I DISORDER
     Dosage: 10 MG

REACTIONS (2)
  - Rash [Not Recovered/Not Resolved]
  - Pruritus [Not Recovered/Not Resolved]
